FAERS Safety Report 7289221-0 (Version None)
Quarter: 2011Q1

REPORT INFORMATION
  Report Type: 
  Country: None (occurrence: None)
  Receive Date: 20110201
  Receipt Date: 20110117
  Transmission Date: 20110831
  Serious: Yes (Other)
  Sender: FDA-Public Use
  Company Number: 2010P1003480

PATIENT
  Age: 77 Year
  Sex: Male
  Weight: 99.7913 kg

DRUGS (11)
  1. FENTANYL-50 [Suspect]
     Indication: ARTHRITIS
     Dosage: 50 MCG/HR;Q60H;TDER ; 50 MCG/HR;Q72H;TDER
     Route: 062
     Dates: start: 20090101
  2. FENTANYL-50 [Suspect]
     Indication: ARTHRITIS
     Dosage: 50 MCG/HR;Q60H;TDER ; 50 MCG/HR;Q72H;TDER
     Route: 062
     Dates: start: 20050401, end: 20090101
  3. COLACE [Concomitant]
  4. VITAMIN D [Concomitant]
  5. MULTI-VITAMIN [Concomitant]
  6. SENNA LAX [Concomitant]
  7. NEXIUM [Concomitant]
  8. WARFARIN SODIUM [Concomitant]
  9. TRAMADOL HCL [Concomitant]
  10. CITALOPRAM HYDROBROMIDE [Concomitant]
  11. SOTALOL HCL [Concomitant]

REACTIONS (15)
  - OSTEOARTHRITIS [None]
  - DRUG EFFECT DECREASED [None]
  - CHILLS [None]
  - ATRIAL FIBRILLATION [None]
  - GASTRITIS [None]
  - CONSTIPATION [None]
  - APHAGIA [None]
  - CHOLECYSTECTOMY [None]
  - PAIN [None]
  - DYSPHAGIA [None]
  - ROTATOR CUFF SYNDROME [None]
  - ATRIAL FLUTTER [None]
  - ABDOMINAL PAIN [None]
  - DIARRHOEA [None]
  - ANXIETY [None]
